FAERS Safety Report 25797155 (Version 1)
Quarter: 2025Q3

REPORT INFORMATION
  Report Type: Spontaneous
  Country: EU (occurrence: EU)
  Receive Date: 20250912
  Receipt Date: 20250912
  Transmission Date: 20251020
  Serious: Yes (Other)
  Sender: DAIICHI
  Company Number: EU-DSJP-DS-2025-163968-IT

PATIENT
  Age: 32 Year
  Sex: Female

DRUGS (1)
  1. TRASTUZUMAB DERUXTECAN [Suspect]
     Active Substance: TRASTUZUMAB DERUXTECAN
     Indication: Breast cancer
     Route: 065
     Dates: start: 202112, end: 202211

REACTIONS (3)
  - Psoriasis [Unknown]
  - Alopecia [Unknown]
  - Asthenia [Unknown]
